FAERS Safety Report 9381950 (Version 1)
Quarter: 2013Q3

REPORT INFORMATION
  Report Type: Spontaneous
  Country: US (occurrence: US)
  Receive Date: 20130703
  Receipt Date: 20130703
  Transmission Date: 20140515
  Serious: Yes (Other)
  Sender: FDA-Public Use
  Company Number: US-ASTRAZENECA-2013SE49094

PATIENT
  Age: 62 Year
  Sex: Male
  Weight: 49 kg

DRUGS (15)
  1. SYMBICORT [Suspect]
     Indication: CHRONIC OBSTRUCTIVE PULMONARY DISEASE
     Dosage: UNKNOWN DOSE TWO TIMES A DAY
     Route: 055
  2. SYMBICORT [Interacting]
     Indication: EMPHYSEMA
     Dosage: UNKNOWN DOSE TWO TIMES A DAY
     Route: 055
  3. CHANTIX [Interacting]
     Indication: SMOKING CESSATION THERAPY
     Route: 065
     Dates: start: 20130612, end: 20130613
  4. CHANTIX [Interacting]
     Indication: CHRONIC OBSTRUCTIVE PULMONARY DISEASE
     Route: 065
     Dates: start: 20130612, end: 20130613
  5. CHANTIX [Interacting]
     Indication: EMPHYSEMA
     Route: 065
     Dates: start: 20130612, end: 20130613
  6. DALIRESP [Interacting]
     Indication: CHRONIC OBSTRUCTIVE PULMONARY DISEASE
     Dosage: UNKNOWN DOSE DAILY
     Route: 065
  7. DALIRESP [Interacting]
     Indication: EMPHYSEMA
     Dosage: UNKNOWN DOSE DAILY
     Route: 065
  8. THEOPHYLLINE(UNKNOWN MANUFACTURER) [Interacting]
     Indication: EMPHYSEMA
     Dosage: UNKNOWN DOSE TWO TIMES A DAY
     Route: 065
  9. THEOPHYLLIN [Interacting]
     Indication: CHRONIC OBSTRUCTIVE PULMONARY DISEASE
     Dosage: UNKNOWN DOSE TWO TIMES A DAY
     Route: 065
  10. SPIRIVA [Interacting]
     Indication: CHRONIC OBSTRUCTIVE PULMONARY DISEASE
     Dosage: UNKNOWN DOSE DAILY
     Route: 065
  11. SPIRIVA [Interacting]
     Indication: EMPHYSEMA
     Dosage: UNKNOWN DOSE DAILY
     Route: 065
  12. ALBUTEROL [Interacting]
     Indication: EMPHYSEMA
     Route: 065
  13. ALBUTEROL [Interacting]
     Indication: CHRONIC OBSTRUCTIVE PULMONARY DISEASE
     Route: 065
  14. UNSPECIFIED ANTIBIOTICS [Concomitant]
  15. UNSPECIFIED STEROIDS [Concomitant]

REACTIONS (5)
  - Drug interaction [Unknown]
  - Dyspnoea [Unknown]
  - Tremor [Unknown]
  - Heart rate increased [Unknown]
  - Nausea [Unknown]
